FAERS Safety Report 5129346-9 (Version None)
Quarter: 2006Q4

REPORT INFORMATION
  Report Type: 
  Country: None (occurrence: None)
  Receive Date: 20061012
  Receipt Date: 20061004
  Transmission Date: 20070319
  Serious: Yes (Other)
  Sender: FDA-Public Use
  Company Number: B0441186A

PATIENT
  Age: 82 Year
  Sex: Female

DRUGS (2)
  1. ALBENZA [Suspect]
     Dosage: 400 MG/TWICE PER DAY;
  2. PRAZIQUANTEL [Concomitant]

REACTIONS (2)
  - CONDITION AGGRAVATED [None]
  - LEUKOPENIA [None]
